FAERS Safety Report 11218752 (Version 1)
Quarter: 2015Q2

REPORT INFORMATION
  Report Type: Spontaneous
  Country: AT (occurrence: AT)
  Receive Date: 20150625
  Receipt Date: 20150625
  Transmission Date: 20150821
  Serious: Yes (Death, Other)
  Sender: FDA-Public Use
  Company Number: PHHY2015AT075976

PATIENT
  Age: 60 Year
  Sex: Male

DRUGS (3)
  1. DENOSUMAB [Suspect]
     Active Substance: DENOSUMAB
     Indication: METASTASES TO BONE
     Route: 065
  2. AFINITOR [Suspect]
     Active Substance: EVEROLIMUS
     Indication: METASTATIC RENAL CELL CARCINOMA
     Route: 065
  3. PAZOPANIB [Suspect]
     Active Substance: PAZOPANIB
     Indication: METASTATIC RENAL CELL CARCINOMA
     Route: 065

REACTIONS (8)
  - Pancreatitis [Unknown]
  - Metastases to central nervous system [Unknown]
  - Metastases to lung [Unknown]
  - Gastrointestinal haemorrhage [Unknown]
  - Malignant neoplasm progression [Unknown]
  - Drug ineffective [Unknown]
  - Death [Fatal]
  - Metastases to bone [Unknown]
